FAERS Safety Report 21187820 (Version 1)
Quarter: 2022Q3

REPORT INFORMATION
  Report Type: Spontaneous
  Country: US (occurrence: US)
  Receive Date: 20220809
  Receipt Date: 20220809
  Transmission Date: 20221027
  Serious: No
  Sender: FDA-Public Use
  Company Number: US-ROCHE-3019019

PATIENT
  Age: 66 Year
  Sex: Male

DRUGS (1)
  1. EVRYSDI [Suspect]
     Active Substance: RISDIPLAM
     Indication: Spinal muscular atrophy
     Route: 048
     Dates: start: 202112

REACTIONS (3)
  - Nasal congestion [Not Recovered/Not Resolved]
  - Decreased appetite [Recovering/Resolving]
  - Weight increased [Unknown]
